FAERS Safety Report 12844173 (Version 1)
Quarter: 2016Q4

REPORT INFORMATION
  Report Type: Spontaneous
  Country: US (occurrence: US)
  Receive Date: 20161012
  Receipt Date: 20161012
  Transmission Date: 20170207
  Serious: Yes (Hospitalization)
  Sender: FDA-Public Use
  Company Number: None

PATIENT
  Age: 37 Year
  Sex: Female
  Weight: 60.75 kg

DRUGS (1)
  1. GIANVI [Suspect]
     Active Substance: DROSPIRENONE\ETHINYL ESTRADIOL
     Indication: POLYCYSTIC OVARIES
     Route: 048
     Dates: start: 20120117, end: 20160926

REACTIONS (5)
  - Haemorrhage [None]
  - Cerebrovascular accident [None]
  - Depression [None]
  - Thrombosis [None]
  - Economic problem [None]

NARRATIVE: CASE EVENT DATE: 20160926
